FAERS Safety Report 4951338-0 (Version None)
Quarter: 2006Q1

REPORT INFORMATION
  Report Type: 
  Country: None (occurrence: None)
  Receive Date: 20060317
  Receipt Date: 20060301
  Transmission Date: 20060701
  Serious: Yes (Other)
  Sender: FDA-Public Use
  Company Number: FR200512001738

PATIENT
  Age: 73 Year
  Sex: Female

DRUGS (13)
  1. FORTEO [Suspect]
     Indication: OSTEOPOROSIS
     Dosage: 20 UG, DAILY (1/D), SUBCUTANEOUS
     Route: 058
     Dates: start: 20051028, end: 20051030
  2. FORTEO [Suspect]
     Indication: OSTEOPOROSIS
     Dosage: 20 UG, DAILY (1/D), SUBCUTANEOUS
     Route: 058
     Dates: start: 20051207, end: 20060101
  3. FORTEO [Suspect]
     Indication: OSTEOPOROSIS
     Dosage: 20 UG, DAILY (1/D), SUBCUTANEOUS
     Route: 058
     Dates: start: 20060201
  4. FORTEO [Concomitant]
  5. BISOPROLOL FUMARATE [Concomitant]
  6. ALDALIX (FUROSEMIDE, SPIRONOLACTONE) [Concomitant]
  7. PREVISCAN (FLUINDIONE) [Concomitant]
  8. SEROPRAM /SCH/ (CITALOPRAM HYDROBROMIDE) TABLET [Concomitant]
  9. CALCIDOSE (CALCIUM CARBONATE) [Concomitant]
  10. PROPOFAN /01607901/ CAFFEINE, DEXTROPROPOXYPHENE, PARACETAMOL) [Concomitant]
  11. LORAZEPAM [Concomitant]
  12. DIOVENOR (DIOSMIN) [Concomitant]
  13. FOSAMAX [Concomitant]

REACTIONS (3)
  - DIARRHOEA [None]
  - GASTRIC ULCER [None]
  - WEIGHT DECREASED [None]
